FAERS Safety Report 8066983-6 (Version None)
Quarter: 2012Q1

REPORT INFORMATION
  Report Type: 
  Country: None (occurrence: None)
  Receive Date: 20120124
  Receipt Date: 20120119
  Transmission Date: 20120608
  Serious: Yes (Other)
  Sender: FDA-Public Use
  Company Number: ES-MERCK-1201ESP00020

PATIENT
  Age: 85 Year
  Sex: Male

DRUGS (6)
  1. FUROSEMIDE [Concomitant]
     Indication: CARDIAC FAILURE
     Route: 048
  2. TIOTROPIUM BROMIDE [Concomitant]
     Indication: CHRONIC OBSTRUCTIVE PULMONARY DISEASE
     Route: 055
  3. COZAAR [Suspect]
     Indication: CARDIAC FAILURE
     Route: 048
     Dates: start: 20110529, end: 20110810
  4. GABAPENTIN [Concomitant]
     Indication: NEURALGIA
     Route: 048
  5. SPIRONOLACTONE [Suspect]
     Indication: CARDIAC FAILURE
     Route: 048
     Dates: start: 20090908, end: 20110810
  6. ACENOCOUMAROL [Concomitant]
     Indication: ATRIAL FLUTTER
     Route: 048

REACTIONS (3)
  - RENAL FAILURE [None]
  - DRUG INTERACTION [None]
  - HYPERKALAEMIA [None]
